FAERS Safety Report 23858248 (Version 1)
Quarter: 2024Q2

REPORT INFORMATION
  Report Type: Spontaneous
  Country: DE (occurrence: DE)
  Receive Date: 20240515
  Receipt Date: 20240515
  Transmission Date: 20240716
  Serious: Yes (Hospitalization, Other)
  Sender: FDA-Public Use
  Company Number: DE-PFIZER INC-DEWYE433728FEB06

PATIENT
  Age: 42 Year
  Sex: Male
  Weight: 80 kg

DRUGS (5)
  1. DOXYCYCLINE HYCLATE [Suspect]
     Active Substance: DOXYCYCLINE HYCLATE
     Dosage: 10 DF(10 TABLETS/OVERDOSE)
     Route: 048
     Dates: start: 20060224, end: 20060224
  2. TREVILOR RETARD [Suspect]
     Active Substance: VENLAFAXINE HYDROCHLORIDE
     Dosage: 20 DF(20 CAPSULES/OVERDOSE AMOUNT 1500 MG)
     Route: 048
     Dates: start: 20060224, end: 20060224
  3. TREVILOR RETARD [Suspect]
     Active Substance: VENLAFAXINE HYDROCHLORIDE
     Dosage: 20 DF (20 TABLETS OF/OVERDOSE AMOUNT 1000 MG)
     Route: 048
     Dates: start: 20060224, end: 20060224
  4. DICLOFENAC SODIUM [Suspect]
     Active Substance: DICLOFENAC\DICLOFENAC SODIUM
     Dosage: 10 DF (10 TABLETS/OVERDOSE AMOUNT 750 MG)
     Route: 048
     Dates: start: 20060224, end: 20060224
  5. ACETAMINOPHEN [Suspect]
     Active Substance: ACETAMINOPHEN
     Dosage: 40 DF (40 TABLETS OF PARACETAMOL/OVERDOSE AMOUNT 20000 MG)
     Route: 048
     Dates: start: 20060224, end: 20060224

REACTIONS (3)
  - Suicide attempt [Unknown]
  - Intentional overdose [Unknown]
  - Sopor [Unknown]

NARRATIVE: CASE EVENT DATE: 20060224
